FAERS Safety Report 7458010-6 (Version None)
Quarter: 2011Q2

REPORT INFORMATION
  Report Type: 
  Country: None (occurrence: None)
  Receive Date: 20110503
  Receipt Date: 20110503
  Transmission Date: 20111010
  Serious: Yes (Hospitalization, Other)
  Sender: FDA-Public Use
  Company Number: None

PATIENT
  Age: 52 Year
  Sex: Female
  Weight: 86.1834 kg

DRUGS (2)
  1. METFORMIN HCL [Suspect]
     Indication: TYPE 2 DIABETES MELLITUS
     Dosage: TWICE A DAY 2 PO
     Route: 048
     Dates: start: 20110422, end: 20110422
  2. CLINDAMYCIN [Suspect]
     Indication: INFECTION
     Dosage: EVERY 6-HOURS 300MG PO
     Route: 048
     Dates: start: 20110426, end: 20110430

REACTIONS (9)
  - PRURITUS [None]
  - SKIN IRRITATION [None]
  - PSORIASIS [None]
  - JOINT SWELLING [None]
  - DRUG HYPERSENSITIVITY [None]
  - INFECTION [None]
  - ACNE [None]
  - SKIN LESION [None]
  - OEDEMA PERIPHERAL [None]
